FAERS Safety Report 8001637-3 (Version None)
Quarter: 2011Q4

REPORT INFORMATION
  Report Type: 
  Country: None (occurrence: None)
  Receive Date: 20111123
  Receipt Date: 20111003
  Transmission Date: 20120403
  Serious: No
  Sender: FDA-Public Use
  Company Number: 336384

PATIENT
  Age: 52 Year
  Sex: Female

DRUGS (1)
  1. VICTOZA [Suspect]
     Indication: TYPE 2 DIABETES MELLITUS
     Dosage: 0.8 MG, QD, SUBCUTANEOUS ; 1.2 MG, QD
     Route: 058

REACTIONS (2)
  - ABDOMINAL PAIN UPPER [None]
  - REGURGITATION [None]
